FAERS Safety Report 6373959-3 (Version None)
Quarter: 2009Q3

REPORT INFORMATION
  Report Type: 
  Country: None (occurrence: None)
  Receive Date: 20090924
  Receipt Date: 20090604
  Transmission Date: 20100115
  Serious: No
  Sender: FDA-Public Use
  Company Number: US-ASTRAZENECA-2009UW13147

PATIENT
  Age: 17476 Day
  Sex: Female
  Weight: 56.7 kg

DRUGS (10)
  1. SEROQUEL XR [Suspect]
     Indication: BIPOLAR DISORDER
     Route: 048
     Dates: start: 20090401, end: 20090101
  2. SEROQUEL XR [Suspect]
     Indication: SLEEP DISORDER
     Route: 048
     Dates: start: 20090401, end: 20090101
  3. SEROQUEL XR [Suspect]
     Route: 048
     Dates: start: 20090101, end: 20090101
  4. SEROQUEL XR [Suspect]
     Route: 048
     Dates: start: 20090101, end: 20090101
  5. SEROQUEL XR [Suspect]
     Route: 048
     Dates: start: 20090101, end: 20090101
  6. SEROQUEL XR [Suspect]
     Route: 048
     Dates: start: 20090101, end: 20090101
  7. SEROQUEL XR [Suspect]
     Route: 048
     Dates: start: 20090101
  8. SEROQUEL XR [Suspect]
     Route: 048
     Dates: start: 20090101
  9. ATIVAN [Concomitant]
     Indication: ANXIETY
  10. THYROID TAB [Concomitant]
     Indication: HYPOTHYROIDISM

REACTIONS (5)
  - DRUG INEFFECTIVE [None]
  - FATIGUE [None]
  - INCREASED APPETITE [None]
  - SLEEP DISORDER [None]
  - WEIGHT INCREASED [None]
